FAERS Safety Report 17905772 (Version 1)
Quarter: 2020Q2

REPORT INFORMATION
  Report Type: Spontaneous
  Country: US (occurrence: US)
  Receive Date: 20200616
  Receipt Date: 20200616
  Transmission Date: 20200714
  Serious: No
  Sender: FDA-Public Use
  Company Number: US-ROCHE-2408269

PATIENT
  Age: 23 Year
  Sex: Female
  Weight: 72.64 kg

DRUGS (3)
  1. METHOTREXATE. [Concomitant]
     Active Substance: METHOTREXATE
  2. ACTEMRA [Suspect]
     Active Substance: TOCILIZUMAB
     Indication: RHEUMATOID ARTHRITIS
     Dosage: 162 MG SUBCUTANEOUS INJECTION EVERY OTHER WEEK ;ONGOING: NO
     Route: 058
     Dates: end: 20190325
  3. ACTEMRA [Suspect]
     Active Substance: TOCILIZUMAB
     Indication: IRITIS

REACTIONS (6)
  - Hypophagia [Unknown]
  - Eructation [Unknown]
  - Liver function test increased [Unknown]
  - Diarrhoea [Unknown]
  - Hyperhidrosis [Unknown]
  - Chills [Unknown]

NARRATIVE: CASE EVENT DATE: 201904
